FAERS Safety Report 5734909-3 (Version None)
Quarter: 2008Q2

REPORT INFORMATION
  Report Type: 
  Country: None (occurrence: None)
  Receive Date: 20080512
  Receipt Date: 20080506
  Transmission Date: 20081010
  Serious: Yes (Disabling, Other)
  Sender: FDA-Public Use
  Company Number: GB-AVENTIS-200617045GDDC

PATIENT
  Age: 38 Year
  Sex: Male
  Weight: 65.6 kg

DRUGS (8)
  1. LANTUS [Suspect]
     Route: 058
     Dates: start: 20030901
  2. LANTUS [Suspect]
     Route: 058
  3. LANTUS [Suspect]
     Route: 058
  4. LANTUS [Suspect]
     Route: 058
  5. LANTUS [Suspect]
     Route: 058
  6. HUMALOG [Concomitant]
     Dosage: DOSE: 5-25
     Dates: start: 19980501
  7. LOSARTAN POTASSIUM [Concomitant]
     Dates: start: 20030101
  8. LISINOPRIL [Concomitant]

REACTIONS (7)
  - DRUG INEFFECTIVE [None]
  - DYSPNOEA [None]
  - HYPERGLYCAEMIA [None]
  - HYPOGLYCAEMIA [None]
  - HYPOGLYCAEMIA UNAWARENESS [None]
  - MUSCLE SPASMS [None]
  - PARALYSIS [None]
